FAERS Safety Report 5306721-0 (Version None)
Quarter: 2007Q2

REPORT INFORMATION
  Report Type: 
  Country: None (occurrence: None)
  Receive Date: 20070424
  Receipt Date: 20070413
  Transmission Date: 20071010
  Serious: Yes (Other)
  Sender: FDA-Public Use
  Company Number: ES-PFIZER INC-2007031317

PATIENT
  Sex: Female

DRUGS (4)
  1. LYRICA [Suspect]
     Indication: POST HERPETIC NEURALGIA
     Route: 048
     Dates: start: 20070401, end: 20070401
  2. FAMCICLOVIR [Concomitant]
  3. AZATHIOPRINE [Concomitant]
  4. PREDNISONE TAB [Concomitant]

REACTIONS (2)
  - HYPERGLYCAEMIA [None]
  - VERTIGO [None]
